FAERS Safety Report 8844084 (Version 1)
Quarter: 2012Q4

REPORT INFORMATION
  Report Type: 
  Country: US (occurrence: US)
  Receive Date: 20121016
  Receipt Date: 20121016
  Transmission Date: 20130627
  Serious: Yes (Other)
  Sender: FDA-Public Use
  Company Number: US-B.I. PHARMACEUTICALS,INC./RIDGEFIELD-2012-BP-25150BP

PATIENT
  Sex: Male
  Weight: 113 kg

DRUGS (3)
  1. SPIRIVA [Suspect]
     Indication: CHRONIC OBSTRUCTIVE PULMONARY DISEASE
     Dosage: 18 mcg
     Route: 055
     Dates: start: 201202
  2. SYMBICORT [Concomitant]
  3. MEDICATION NOT FURTHER SPECIFIED [Concomitant]

REACTIONS (3)
  - Hepatic cancer [Not Recovered/Not Resolved]
  - Bronchitis [Recovered/Resolved]
  - Confusional state [Not Recovered/Not Resolved]
